FAERS Safety Report 4979825-X (Version None)
Quarter: 2006Q2

REPORT INFORMATION
  Report Type: 
  Country: None (occurrence: None)
  Receive Date: 20060421
  Receipt Date: 20011003
  Transmission Date: 20061013
  Serious: Yes (Hospitalization)
  Sender: FDA-Public Use
  Company Number: US-MERCK-01100581

PATIENT
  Age: 72 Year
  Sex: Female
  Weight: 64 kg

DRUGS (9)
  1. VIOXX [Suspect]
     Indication: JOINT SPRAIN
     Route: 048
     Dates: start: 20010518, end: 20010101
  2. VIOXX [Suspect]
     Route: 048
     Dates: start: 20010518, end: 20010101
  3. VIOXX [Suspect]
     Route: 048
     Dates: start: 20010620
  4. VIOXX [Suspect]
     Route: 048
     Dates: start: 20010620
  5. ADALAT [Concomitant]
     Route: 065
  6. PLAVIX [Concomitant]
     Route: 065
  7. LIPITOR [Concomitant]
     Route: 065
  8. ASPIRIN [Concomitant]
     Route: 065
  9. ALEVE [Concomitant]
     Route: 065

REACTIONS (8)
  - ARTERIOSCLEROSIS [None]
  - CAROTID ARTERY ATHEROMA [None]
  - CEREBROVASCULAR ACCIDENT [None]
  - COLONIC POLYP [None]
  - DIVERTICULUM [None]
  - HAEMORRHOIDS [None]
  - NEPHROLITHIASIS [None]
  - TRANSIENT ISCHAEMIC ATTACK [None]
